FAERS Safety Report 15857517 (Version 1)
Quarter: 2019Q1

REPORT INFORMATION
  Report Type: Spontaneous
  Country: US (occurrence: US)
  Receive Date: 20190122
  Receipt Date: 20190122
  Transmission Date: 20190417
  Serious: No
  Sender: FDA-Public Use
  Company Number: None

PATIENT
  Age: 57 Year
  Sex: Female
  Weight: 51.75 kg

DRUGS (5)
  1. VITAMIN D [Concomitant]
     Active Substance: CHOLECALCIFEROL
  2. MELATONIN [Concomitant]
     Active Substance: MELATONIN
  3. GADOLINIUM [Suspect]
     Active Substance: GADOLINIUM
     Indication: PRODUCT USED FOR UNKNOWN INDICATION
     Route: 042
     Dates: start: 20170925, end: 20170925
  4. SERRATIOPEPTIDASE [Concomitant]
     Active Substance: SERRAPEPTASE
  5. MAGNESIUM [Concomitant]
     Active Substance: MAGNESIUM

REACTIONS (6)
  - Injection site coldness [None]
  - Neuralgia [None]
  - Injection site pain [None]
  - Feeling cold [None]
  - Injection site paraesthesia [None]
  - Pain in extremity [None]

NARRATIVE: CASE EVENT DATE: 20171009
